FAERS Safety Report 9936829 (Version 1)
Quarter: 2014Q1

REPORT INFORMATION
  Report Type: Spontaneous
  Country: US (occurrence: None)
  Receive Date: 20140110
  Receipt Date: 20140110
  Transmission Date: 20141002
  Serious: Yes (Other)
  Sender: FDA-Public Use
  Company Number: 2013ALE000165

PATIENT
  Age: 65 Year
  Sex: Female

DRUGS (2)
  1. VENLAFAXINE HYDROCHLORIDE [Suspect]
     Indication: PRODUCT USED FOR UNKNOWN INDICATION
     Dosage: 75 MG DAILY WITH GRADUAL TRITRATION TO TARGET DOSE 300MG/DAY (150MG TWICE DAILY)
  2. ZOLPIDEM (ZOLPIDEM) [Concomitant]

REACTIONS (1)
  - Orthostatic hypotension [None]
